FAERS Safety Report 9764334 (Version 2)
Quarter: 2013Q4

REPORT INFORMATION
  Report Type: Spontaneous
  Country: US (occurrence: US)
  Receive Date: 20131217
  Receipt Date: 20131217
  Transmission Date: 20140711
  Serious: Yes (Other)
  Sender: FDA-Public Use
  Company Number: US-BEH-2013037083

PATIENT
  Age: 13 Year
  Sex: Female

DRUGS (5)
  1. BERINERT-P [Suspect]
     Indication: SWOLLEN TONGUE
     Dosage: FIRST DOSE
     Route: 042
     Dates: start: 20130719, end: 20130719
  2. PREDNISONE [Concomitant]
     Route: 048
  3. ALLEGRA [Concomitant]
     Route: 048
  4. ZANTAC [Concomitant]
     Route: 048
  5. PROGESTERONE [Concomitant]
     Indication: CONTRACEPTION
     Route: 048

REACTIONS (4)
  - Hypersensitivity [Recovered/Resolved]
  - Swollen tongue [Recovered/Resolved]
  - Tongue discolouration [Recovered/Resolved]
  - Glossodynia [Recovered/Resolved]
